FAERS Safety Report 4502911-5 (Version None)
Quarter: 2004Q4

REPORT INFORMATION
  Report Type: 
  Country: None (occurrence: None)
  Receive Date: 20041112
  Receipt Date: 20041028
  Transmission Date: 20050328
  Serious: Yes (Hospitalization)
  Sender: FDA-Public Use
  Company Number: 2004-BP-10808RO

PATIENT
  Age: 57 Year
  Sex: Female

DRUGS (6)
  1. DEXAMETHASONE [Suspect]
     Indication: MULTIPLE MYELOMA
     Dosage: CYCLIC: 40 MG/DAY/CYCLE, PO
     Route: 048
     Dates: start: 20020731, end: 20021101
  2. MULTIVITAMIN (MULTIVITAMINS) [Concomitant]
  3. FAMOTIDINE [Concomitant]
  4. BACTRIM [Concomitant]
  5. OXYCODONE (OXYCODONE) [Concomitant]
  6. ACETAMINOPHEN W/CODEINE (GALENIC/PARACETAMOL/CODEINE/) [Concomitant]

REACTIONS (12)
  - ABDOMINAL PAIN [None]
  - ABNORMAL BEHAVIOUR [None]
  - ACTIVITIES OF DAILY LIVING IMPAIRED [None]
  - ASTHENIA [None]
  - BONE MARROW DEPRESSION [None]
  - CHEST PAIN [None]
  - HEART RATE INCREASED [None]
  - MALIGNANT NEOPLASM PROGRESSION [None]
  - MEMORY IMPAIRMENT [None]
  - MYALGIA [None]
  - ORTHOPNOEA [None]
  - OSTEOLYSIS [None]
